FAERS Safety Report 6401733-8 (Version None)
Quarter: 2009Q4

REPORT INFORMATION
  Report Type: 
  Country: None (occurrence: None)
  Receive Date: 20091009
  Receipt Date: 20090925
  Transmission Date: 20100525
  Serious: Yes (Other)
  Sender: FDA-Public Use
  Company Number: DSJ-2009-12541

PATIENT
  Age: 64 Year
  Sex: Female

DRUGS (4)
  1. AMLODIPINE BESYLATE AND OLMESARTAN MEDOXOMIL [Suspect]
     Indication: HYPERTENSION
     Dosage: 40/5 MG (1 IN 1 D), PER ORAL
     Route: 048
     Dates: start: 20080101, end: 20090901
  2. METOPROLOL TARTRATE [Concomitant]
  3. WARFARIN SODIUM [Concomitant]
  4. DIABETES MEDICINE [Concomitant]

REACTIONS (4)
  - ARRHYTHMIA [None]
  - CEREBROVASCULAR ACCIDENT [None]
  - DIZZINESS [None]
  - VOMITING [None]
